FAERS Safety Report 4724122-0 (Version None)
Quarter: 2005Q3

REPORT INFORMATION
  Report Type: 
  Country: None (occurrence: None)
  Receive Date: 20050725
  Receipt Date: 20041027
  Transmission Date: 20060218
  Serious: No
  Sender: FDA-Public Use
  Company Number: DE-MERCK-0410DEU00768

PATIENT
  Sex: Male

DRUGS (8)
  1. VIOXX [Suspect]
     Indication: FIBROMYALGIA
     Route: 048
     Dates: start: 20020101, end: 20030601
  2. FLUOXETINE HYDROCHLORIDE [Concomitant]
     Indication: DEPRESSION
     Route: 048
     Dates: end: 20030101
  3. THEOPHYLLINE [Concomitant]
     Indication: BRONCHITIS
     Route: 048
     Dates: end: 20030101
  4. TILIDINE HYDROCHLORIDE [Concomitant]
     Indication: FIBROMYALGIA
     Route: 048
  5. VERAPAMIL [Concomitant]
     Route: 048
  6. CANDESARTAN CILEXETIL [Concomitant]
     Route: 048
     Dates: start: 19980101
  7. HYDROCHLOROTHIAZIDE [Concomitant]
     Route: 048
     Dates: start: 19980101
  8. MOXONIDINE [Concomitant]
     Route: 048
     Dates: start: 20010101, end: 20050101

REACTIONS (8)
  - ANGINA PECTORIS [None]
  - CARDIAC DISORDER [None]
  - CHEST PAIN [None]
  - DIZZINESS [None]
  - DYSPNOEA [None]
  - HYPERTENSION [None]
  - MALAISE [None]
  - TACHYCARDIA [None]
